FAERS Safety Report 8196840-6 (Version None)
Quarter: 2012Q1

REPORT INFORMATION
  Report Type: 
  Country: None (occurrence: None)
  Receive Date: 20120227
  Receipt Date: 20120110
  Transmission Date: 20120608
  Serious: Yes (Hospitalization)
  Sender: FDA-Public Use
  Company Number: 331106

PATIENT
  Age: 66 Year
  Sex: Female
  Weight: 106.6 kg

DRUGS (12)
  1. ARICEPT [Concomitant]
  2. TENORMIN [Concomitant]
  3. CELEXA [Concomitant]
  4. GLIPIZIDE [Concomitant]
  5. ALPRAZOLAM [Concomitant]
  6. VICTOZA [Suspect]
     Indication: TYPE 2 DIABETES MELLITUS
     Dosage: 0.3 MG, QD, SUBCUTANEOUS
     Route: 058
     Dates: start: 20110622, end: 20110625
  7. PLAVIX [Concomitant]
  8. ZOCOR [Concomitant]
  9. SLOW MAG (MAGNESIUM CHLORIDE ANHYDROUS) [Concomitant]
  10. AMBIEN [Concomitant]
  11. METFORMIN HCL [Concomitant]
  12. DYAZIDE [Concomitant]

REACTIONS (5)
  - DEHYDRATION [None]
  - WEIGHT DECREASED [None]
  - PANCREATITIS ACUTE [None]
  - DIARRHOEA [None]
  - BLOOD GLUCOSE FLUCTUATION [None]
